FAERS Safety Report 11162525 (Version 1)
Quarter: 2015Q2

REPORT INFORMATION
  Report Type: Spontaneous
  Country: None (occurrence: None)
  Receive Date: 20150602
  Receipt Date: 20150602
  Transmission Date: 20150821
  Serious: Yes (Death)
  Sender: FDA-Public Use
  Company Number: 2015050052

PATIENT

DRUGS (1)
  1. TALOXA [Suspect]
     Active Substance: FELBAMATE
     Route: 048

REACTIONS (1)
  - Death [None]
